FAERS Safety Report 5916815-4 (Version None)
Quarter: 2008Q4

REPORT INFORMATION
  Report Type: 
  Country: None (occurrence: None)
  Receive Date: 20081013
  Receipt Date: 20081001
  Transmission Date: 20090506
  Serious: Yes (Other)
  Sender: FDA-Public Use
  Company Number: US-PFIZER INC-2008082872

PATIENT
  Sex: Male

DRUGS (3)
  1. VIAGRA [Suspect]
  2. ALL OTHER THERAPEUTIC PRODUCTS [Suspect]
  3. ANTIHYPERTENSIVES [Concomitant]
     Indication: HYPERTENSION

REACTIONS (6)
  - CYSTITIS [None]
  - HYPERTENSION [None]
  - IMMUNE SYSTEM DISORDER [None]
  - LOSS OF CONSCIOUSNESS [None]
  - PYREXIA [None]
  - WEIGHT DECREASED [None]
